FAERS Safety Report 13533477 (Version 1)
Quarter: 2017Q2

REPORT INFORMATION
  Report Type: Spontaneous
  Country: DE (occurrence: DE)
  Receive Date: 20170510
  Receipt Date: 20170510
  Transmission Date: 20170830
  Serious: Yes (Other)
  Sender: FDA-Public Use
  Company Number: DE-MYLANLABS-2017M1027799

PATIENT

DRUGS (2)
  1. FONDAPARINUX [Suspect]
     Active Substance: FONDAPARINUX
     Dosage: 2.5MG/0.5ML
     Route: 058
  2. FONDAPARINUX [Suspect]
     Active Substance: FONDAPARINUX
     Indication: FACTOR V LEIDEN MUTATION
     Dosage: 7.5MG/0.6ML
     Route: 058

REACTIONS (2)
  - Thrombocytopenia [Unknown]
  - Off label use [Unknown]
